FAERS Safety Report 9087667 (Version 2)
Quarter: 2013Q1

REPORT INFORMATION
  Report Type: Report from Study
  Country: JP (occurrence: JP)
  Receive Date: 20130201
  Receipt Date: 20130304
  Transmission Date: 20140127
  Serious: Yes (Other)
  Sender: FDA-Public Use
  Company Number: JP-JNJFOC-20130115693

PATIENT
  Sex: Male

DRUGS (5)
  1. GALANTAMINE [Suspect]
     Indication: DEMENTIA ALZHEIMER^S TYPE
     Route: 048
     Dates: start: 20120321, end: 20120403
  2. RISPERDAL [Suspect]
     Indication: DEPRESSION
     Route: 048
  3. SEROQUEL [Suspect]
     Indication: DEPRESSION
     Route: 048
  4. DESYREL [Suspect]
     Indication: DEPRESSION
     Route: 048
  5. URSO [Concomitant]
     Indication: CHRONIC HEPATITIS C
     Route: 048

REACTIONS (2)
  - Psychiatric symptom [Recovered/Resolved]
  - Restlessness [Recovered/Resolved]
